FAERS Safety Report 22534686 (Version 1)
Quarter: 2023Q2

REPORT INFORMATION
  Report Type: Spontaneous
  Country: ES (occurrence: ES)
  Receive Date: 20230608
  Receipt Date: 20230608
  Transmission Date: 20230722
  Serious: Yes (Life-Threatening)
  Sender: FDA-Public Use
  Company Number: None

PATIENT
  Age: 64 Year
  Sex: Male
  Weight: 74.9 kg

DRUGS (8)
  1. BORTEZOMIB [Suspect]
     Active Substance: BORTEZOMIB
     Indication: Plasma cell myeloma
     Dosage: 1 INYECCI?N DE 2.53 MG EL 14/02 Y OTRA EL 17/02?1 INJECTION OF 2.53 MG ON 02/14 AND ANOTHER ON 02/17
     Route: 058
     Dates: start: 20230214, end: 20230217
  2. DARZALEX [Suspect]
     Active Substance: DARATUMUMAB
     Indication: Plasma cell myeloma
     Dosage: 1 INYECCION SC?1 SC INJECTION
     Route: 058
     Dates: start: 20230214, end: 20230214
  3. REVLIMID [Suspect]
     Active Substance: LENALIDOMIDE
     Indication: Plasma cell myeloma
     Dosage: 1 COMPRIMIDO DE 25MG AL D?A?1 TABLET OF 25MG PER DAY
     Route: 048
     Dates: start: 20230214, end: 20230218
  4. ZOLEDRONIC ACID [Concomitant]
     Active Substance: ZOLEDRONIC ACID
     Indication: Plasma cell myeloma
     Dosage: 1 DOSIS 4 MG IV EL 14/02/2023?1 DOSE 4 MG IV ON 02/14/2023
     Route: 042
     Dates: start: 20230214, end: 20230214
  5. ENOXAPARIN SODIUM [Concomitant]
     Active Substance: ENOXAPARIN SODIUM
     Indication: Prophylaxis
     Dosage: 1 INYECCI?N SUBCUT?NEA DE 40MG UNA VEZ AL D?A?1 SUBCUTANEOUS INJECTION OF 40MG ONCE A DAY
     Route: 058
     Dates: start: 20230207
  6. DEXAMETHASONE [Concomitant]
     Active Substance: DEXAMETHASONE
     Indication: Plasma cell myeloma
     Dosage: 1 COMPRIMIDO AL D?A DE 20MG (MARTES Y MI?RCOLES)?1 20MG TABLET A DAY (TUESDAY AND WEDNESDAY)
     Route: 048
     Dates: start: 20230214
  7. ACYCLOVIR [Concomitant]
     Active Substance: ACYCLOVIR
     Indication: Prophylaxis
     Dosage: 1 COMPRIMIDO 800MG AL D?A?1 TABLET 800MG PER DAY
     Route: 048
     Dates: start: 20230214
  8. SEPTRIN FORTE 160 mg/800 mg TABLETS, 50 tablets [Concomitant]
     Indication: Prophylaxis
     Dosage: 1 COMPRIMIDO CADA 12 HORAS MARTES Y JUEVES?1 TABLET EVERY 12 HOURS TUESDAY AND THURSDAY
     Route: 048
     Dates: start: 20230214

REACTIONS (4)
  - Pancytopenia [Recovered/Resolved]
  - Pneumonia [Recovered/Resolved]
  - Febrile neutropenia [Recovered/Resolved]
  - Septic shock [Recovered/Resolved]

NARRATIVE: CASE EVENT DATE: 20230218
